FAERS Safety Report 5483704-1 (Version None)
Quarter: 2007Q4

REPORT INFORMATION
  Report Type: 
  Country: None (occurrence: None)
  Receive Date: 20071012
  Receipt Date: 20070928
  Transmission Date: 20080405
  Serious: Yes (Other)
  Sender: FDA-Public Use
  Company Number: US-ELI_LILLY_AND_COMPANY-US200709006904

PATIENT
  Sex: Female

DRUGS (4)
  1. CYMBALTA [Suspect]
     Indication: DEPRESSION
     Dosage: 60 MG, DAILY (1/D)
     Dates: start: 20070201
  2. PROZAC [Suspect]
     Indication: DEPRESSION
     Dosage: UNK MG, UNK
     Dates: start: 19980101
  3. XANAX [Concomitant]
  4. SYNTHROID [Concomitant]

REACTIONS (3)
  - FATIGUE [None]
  - LYMPHOMA [None]
  - NAUSEA [None]
